FAERS Safety Report 15659515 (Version 1)
Quarter: 2018Q4

REPORT INFORMATION
  Report Type: Spontaneous
  Country: LB (occurrence: LB)
  Receive Date: 20181127
  Receipt Date: 20181127
  Transmission Date: 20190205
  Serious: Yes (Death, Other)
  Sender: FDA-Public Use
  Company Number: LB-SUN PHARMACEUTICAL INDUSTRIES LTD-2018RR-191941

PATIENT
  Age: 23 Year
  Sex: Female

DRUGS (22)
  1. PREDNISONE. [Suspect]
     Active Substance: PREDNISONE
     Indication: LEUKAEMIA RECURRENT
     Dosage: 60 MILLIGRAM, DAILY
     Route: 065
     Dates: start: 20171222
  2. VENETOCLAX. [Suspect]
     Active Substance: VENETOCLAX
     Dosage: 50 MILLIGRAM
     Route: 065
     Dates: start: 20171230
  3. DOXORUBICIN [Suspect]
     Active Substance: DOXORUBICIN
     Indication: T-CELL TYPE ACUTE LEUKAEMIA
     Dosage: 8 CYCLES
     Route: 065
  4. METHOTREXATE. [Suspect]
     Active Substance: METHOTREXATE
     Indication: T-CELL TYPE ACUTE LEUKAEMIA
     Dosage: UNK
     Route: 065
  5. METHOTREXATE. [Suspect]
     Active Substance: METHOTREXATE
     Dosage: UNK
     Route: 065
  6. VINCRISTINE [Suspect]
     Active Substance: VINCRISTINE
     Dosage: 1.5 MILLIGRAM/SQ. METER (CAPPED AT 2 MG), WEEKLY FOR 3 WEEKS
     Route: 065
     Dates: start: 20171222
  7. VINCRISTINE [Suspect]
     Active Substance: VINCRISTINE
     Dosage: UNK
  8. DEXAMETHASONE. [Suspect]
     Active Substance: DEXAMETHASONE
     Indication: T-CELL TYPE ACUTE LEUKAEMIA
     Dosage: UNK
     Route: 065
  9. L-ASPARAGINASE [Suspect]
     Active Substance: ASPARAGINASE
     Indication: LEUKAEMIA RECURRENT
     Dosage: 6000 UNITS/M2 3 TIMES WEEKLY FOR 9 DOSES
     Route: 065
     Dates: start: 20171222
  10. VENETOCLAX. [Suspect]
     Active Substance: VENETOCLAX
     Indication: LEUKAEMIA RECURRENT
     Dosage: 20 MILLIGRAM, DAILY
     Route: 065
     Dates: start: 20171229
  11. METHOTREXATE. [Suspect]
     Active Substance: METHOTREXATE
     Indication: T-CELL TYPE ACUTE LEUKAEMIA
     Dosage: 12 MILLIGRAM, ON DAY 14
     Route: 037
     Dates: start: 20171222
  12. CYCLOPHOSPHAMIDE. [Suspect]
     Active Substance: CYCLOPHOSPHAMIDE
     Indication: STEM CELL TRANSPLANT
     Dosage: UNK
     Route: 065
     Dates: start: 201711
  13. VENETOCLAX. [Suspect]
     Active Substance: VENETOCLAX
     Dosage: UNK
     Route: 065
     Dates: start: 20180131
  14. CYTARABINE. [Suspect]
     Active Substance: CYTARABINE
     Indication: T-CELL TYPE ACUTE LEUKAEMIA
     Route: 065
  15. CYTARABINE. [Suspect]
     Active Substance: CYTARABINE
     Dosage: 70 MILLIGRAM, ON DAY 0
     Route: 037
     Dates: start: 20171222
  16. VENETOCLAX. [Suspect]
     Active Substance: VENETOCLAX
     Dosage: 100 MILLIGRAM, DAILY
     Route: 065
     Dates: start: 20171231
  17. VENETOCLAX. [Suspect]
     Active Substance: VENETOCLAX
     Dosage: 200 MILLIGRAM, DAILY
     Route: 065
     Dates: start: 20180101
  18. CLOFARABINE. [Suspect]
     Active Substance: CLOFARABINE
     Indication: LEUKAEMIA RECURRENT
     Dosage: UNK
     Route: 065
     Dates: start: 201709
  19. CYCLOPHOSPHAMIDE. [Suspect]
     Active Substance: CYCLOPHOSPHAMIDE
     Indication: T-CELL TYPE ACUTE LEUKAEMIA
     Dosage: 8 CYCLES
     Route: 065
  20. 6-MERCAPTOPURINE [Suspect]
     Active Substance: MERCAPTOPURINE
     Indication: PRODUCT USED FOR UNKNOWN INDICATION
     Dosage: UNK
     Route: 065
  21. VENETOCLAX. [Suspect]
     Active Substance: VENETOCLAX
     Dosage: 400 MILLIGRAM, QD
     Route: 065
     Dates: start: 20180102
  22. VINCRISTINE [Suspect]
     Active Substance: VINCRISTINE
     Indication: T-CELL TYPE ACUTE LEUKAEMIA
     Dosage: 8 CYCLES
     Route: 065

REACTIONS (11)
  - Gastrointestinal disorder [Unknown]
  - Pancytopenia [Unknown]
  - Leukaemia recurrent [Unknown]
  - Neurotoxicity [Recovered/Resolved]
  - Minimal residual disease [Unknown]
  - Lymphadenopathy [Unknown]
  - Graft versus host disease [Unknown]
  - Tumour lysis syndrome [Recovering/Resolving]
  - Leukaemia recurrent [Unknown]
  - Febrile neutropenia [Unknown]
  - Respiratory distress [Fatal]

NARRATIVE: CASE EVENT DATE: 201709
